FAERS Safety Report 4359696-5 (Version None)
Quarter: 2004Q2

REPORT INFORMATION
  Report Type: 
  Country: None (occurrence: None)
  Receive Date: 20040513
  Receipt Date: 20040427
  Transmission Date: 20050107
  Serious: Yes (Other)
  Sender: FDA-Public Use
  Company Number: 2004210887AU

PATIENT
  Sex: Female
  Weight: 2.7 kg

DRUGS (4)
  1. NIFEDICOR    (NIFEDIPINE) [Suspect]
     Indication: PREMATURE LABOUR
     Dosage: 20 MG, TID
  2. AMOXICILLIN [Suspect]
     Indication: PROPHYLAXIS
     Dosage: 1G
  3. HEPARIN SODIUM INJECTION, USP (HEPARIN SODUM) SOLUTION, STERILE [Suspect]
  4. BETAMETHASONE [Suspect]
     Indication: PREMATURE LABOUR

REACTIONS (10)
  - ANION GAP INCREASED [None]
  - CYANOSIS [None]
  - DRUG EXPOSURE DURING PREGNANCY [None]
  - DYSPNOEA [None]
  - HYPOXIA [None]
  - METABOLIC ACIDOSIS [None]
  - OEDEMA PERIPHERAL [None]
  - PREMATURE BABY [None]
  - RESPIRATORY ALKALOSIS [None]
  - VENOUS PRESSURE JUGULAR INCREASED [None]
